FAERS Safety Report 10944086 (Version 1)
Quarter: 2015Q1

REPORT INFORMATION
  Report Type: Spontaneous
  Country: IT (occurrence: IT)
  Receive Date: 20150323
  Receipt Date: 20150323
  Transmission Date: 20150721
  Serious: Yes (Other)
  Sender: FDA-Public Use
  Company Number: IT-ROCHE-1553978

PATIENT
  Age: 43 Year
  Sex: Male

DRUGS (1)
  1. RITUXIMAB [Suspect]
     Active Substance: RITUXIMAB
     Indication: LEUKAEMIA
     Dosage: LAST DOSE OF RITUXIMAB ON 13/MAR/2015
     Route: 065
     Dates: start: 201306

REACTIONS (1)
  - Blood lactate dehydrogenase increased [Not Recovered/Not Resolved]
